FAERS Safety Report 7671263-4 (Version None)
Quarter: 2011Q3

REPORT INFORMATION
  Report Type: 
  Country: None (occurrence: None)
  Receive Date: 20110809
  Receipt Date: 20110728
  Transmission Date: 20111222
  Serious: Yes (Hospitalization)
  Sender: FDA-Public Use
  Company Number: DK-SANOFI-AVENTIS-2011SA009005

PATIENT
  Age: 71 Year
  Sex: Male

DRUGS (9)
  1. METOPROLOL SUCCINATE [Concomitant]
     Indication: ATRIAL FIBRILLATION
     Dates: start: 20110210
  2. FUROSEMIDE [Concomitant]
     Indication: DIURETIC THERAPY
     Dosage: VARYING
     Dates: start: 20110107
  3. ASPIRIN [Concomitant]
     Dates: start: 20090919
  4. ALLOPURINOL [Concomitant]
     Indication: GOUT
     Dates: start: 20100505
  5. WARFARIN SODIUM [Concomitant]
     Indication: ANTICOAGULANT THERAPY
     Dates: start: 20100520
  6. OMEPRAZOLE [Concomitant]
     Indication: ABDOMINAL PAIN
     Dates: start: 20090914
  7. SIMVASTATIN [Concomitant]
     Indication: HYPERCHOLESTEROLAEMIA
     Dates: start: 20090421
  8. POTASSIUM CHLORIDE [Concomitant]
     Dosage: VARYING
     Dates: start: 20110601
  9. MULTAQ [Suspect]
     Route: 048
     Dates: start: 20101101, end: 20110130

REACTIONS (2)
  - DYSPNOEA [None]
  - PERICARDIAL EFFUSION [None]
